FAERS Safety Report 23483900 (Version 2)
Quarter: 2024Q1

REPORT INFORMATION
  Report Type: Report from Study
  Country: FR (occurrence: FR)
  Receive Date: 20240205
  Receipt Date: 20240210
  Transmission Date: 20240410
  Serious: Yes (Death, Hospitalization, Other)
  Sender: FDA-Public Use
  Company Number: FR-CELLTRION INC.-2024FR002273

PATIENT

DRUGS (7)
  1. RITUXIMAB [Suspect]
     Active Substance: RITUXIMAB
     Indication: Diffuse large B-cell lymphoma
     Dosage: 375 MG/M2, EVERY 3 WEEKS, ON 04/DEC/2023, MOST RECENT DOSE PRIOR TO AE/SAE WAS TAKEN
     Route: 042
     Dates: start: 20231204
  2. DOXORUBICIN [Suspect]
     Active Substance: DOXORUBICIN
     Indication: Diffuse large B-cell lymphoma
     Dosage: 50 MG/M2, EVERY 3 WEEKS ON 04/DEC/2023, MOST RECENT DOSE PRIOR TO AE/SAE WAS TAKEN
     Route: 042
     Dates: start: 20231204
  3. CYCLOPHOSPHAMIDE [Suspect]
     Active Substance: CYCLOPHOSPHAMIDE
     Indication: Diffuse large B-cell lymphoma
     Dosage: 750 MG/M2, EVERY 3 WEEKS ON 04/DEC/2023, MOST RECENT DOSE PRIOR TO AE/SAE WAS TAKEN
     Route: 042
     Dates: start: 20231204
  4. VINCRISTINE [Suspect]
     Active Substance: VINCRISTINE
     Indication: Diffuse large B-cell lymphoma
     Dosage: 2 MG EVERY 3 WEEKS ON 04/DEC/2023, MOST RECENT DOSE PRIOR TO AE/SAE WAS TAKEN
     Route: 042
     Dates: start: 20231204
  5. VINCRISTINE [Suspect]
     Active Substance: VINCRISTINE
     Dosage: 2 MG EVERY 3 WEEKS ON 04/DEC/2023, MOST RECENT DOSE PRIOR TO AE/SAE WAS TAKEN
     Route: 042
  6. METHYLPREDNISOLONE [Suspect]
     Active Substance: METHYLPREDNISOLONE
     Indication: Diffuse large B-cell lymphoma
     Dosage: 80 MG
     Route: 042
     Dates: start: 20231204
  7. PREDNISONE [Suspect]
     Active Substance: PREDNISONE
     Indication: Diffuse large B-cell lymphoma
     Dosage: 80 MG
     Route: 065
     Dates: start: 20231205

REACTIONS (1)
  - Sepsis [Fatal]

NARRATIVE: CASE EVENT DATE: 20231213
